FAERS Safety Report 11559908 (Version 1)
Quarter: 2015Q3

REPORT INFORMATION
  Report Type: Spontaneous
  Country: US (occurrence: US)
  Receive Date: 20150916
  Receipt Date: 20150916
  Transmission Date: 20151125
  Serious: No
  Sender: FDA-Public Use
  Company Number: US-ELI_LILLY_AND_COMPANY-US200809001012

PATIENT
  Sex: Female

DRUGS (2)
  1. FORTEO [Suspect]
     Active Substance: TERIPARATIDE
  2. FORTEO [Suspect]
     Active Substance: TERIPARATIDE
     Dates: start: 2007

REACTIONS (8)
  - Blood count abnormal [Unknown]
  - Vitreous detachment [Unknown]
  - Injection site nodule [Unknown]
  - Visual acuity reduced [Unknown]
  - Eye pain [Unknown]
  - Feeling abnormal [Unknown]
  - Nervousness [Unknown]
  - Weight decreased [Unknown]

NARRATIVE: CASE EVENT DATE: 20080813
